FAERS Safety Report 4691557-4 (Version None)
Quarter: 2005Q2

REPORT INFORMATION
  Report Type: 
  Country: None (occurrence: None)
  Receive Date: 20050608
  Receipt Date: 20050203
  Transmission Date: 20051028
  Serious: Yes (Other)
  Sender: FDA-Public Use
  Company Number: 394693

PATIENT
  Sex: Female

DRUGS (2)
  1. ACCUTANE [Suspect]
     Dosage: 60 MG DAILY ORAL
     Route: 048
  2. YASMIN [Concomitant]

REACTIONS (2)
  - BENIGN INTRACRANIAL HYPERTENSION [None]
  - BREAST DISCHARGE [None]
